FAERS Safety Report 23416808 (Version 1)
Quarter: 2024Q1

REPORT INFORMATION
  Report Type: Spontaneous
  Country: US (occurrence: US)
  Receive Date: 20240118
  Receipt Date: 20240118
  Transmission Date: 20240409
  Serious: No
  Sender: FDA-Public Use
  Company Number: US-PFIZER INC-PV202400004505

PATIENT

DRUGS (2)
  1. NURTEC ODT [Interacting]
     Active Substance: RIMEGEPANT SULFATE
     Indication: Migraine
     Dosage: UNK, ALTERNATE DAY(HAVE BEEN TAKING ONE EVERY OTHER DAY THAT WHOLE TIME)
  2. BOTOX [Interacting]
     Active Substance: ONABOTULINUMTOXINA
     Dosage: UNK

REACTIONS (2)
  - Therapeutic response unexpected [Unknown]
  - Drug interaction [Unknown]
